FAERS Safety Report 22180460 (Version 2)
Quarter: 2023Q2

REPORT INFORMATION
  Report Type: Spontaneous
  Country: DK (occurrence: DK)
  Receive Date: 20230406
  Receipt Date: 20230417
  Transmission Date: 20230721
  Serious: Yes (Other)
  Sender: FDA-Public Use
  Company Number: DK-BoehringerIngelheim-2023-BI-229440

PATIENT
  Age: 75 Year
  Sex: Female
  Weight: 69 kg

DRUGS (2)
  1. PRADAXA [Suspect]
     Active Substance: DABIGATRAN ETEXILATE MESYLATE
     Indication: Factor V Leiden mutation
     Dosage: THE PATIENT STARTED TREATMENT ABOUT 1 MONTH AGO
     Dates: start: 2023
  2. DULOXETINE [Suspect]
     Active Substance: DULOXETINE
     Indication: Depression
     Dosage: THE PATIENT HAS TAKEN DULOXETIN FOR YEARS

REACTIONS (11)
  - Suicidal ideation [Recovering/Resolving]
  - Gastrooesophageal reflux disease [Recovering/Resolving]
  - Dysphagia [Recovering/Resolving]
  - Decreased appetite [Recovering/Resolving]
  - Weight decreased [Recovering/Resolving]
  - Restlessness [Recovering/Resolving]
  - Insomnia [Recovering/Resolving]
  - Drug interaction [Recovering/Resolving]
  - Nightmare [Recovering/Resolving]
  - Dizziness [Recovering/Resolving]
  - Logorrhoea [Recovering/Resolving]

NARRATIVE: CASE EVENT DATE: 20230101
